FAERS Safety Report 5735506-6 (Version None)
Quarter: 2008Q2

REPORT INFORMATION
  Report Type: 
  Country: None (occurrence: None)
  Receive Date: 20080508
  Receipt Date: 20080505
  Transmission Date: 20081010
  Serious: Yes (Death, Hospitalization, Other)
  Sender: FDA-Public Use
  Company Number: 2008SP008078

PATIENT
  Age: 79 Year
  Sex: Male
  Weight: 91 kg

DRUGS (9)
  1. TEMODAR [Suspect]
     Indication: ACUTE MYELOID LEUKAEMIA
     Dosage: 100 MG/M2;QD;PO : 200 MG/M2;QD;PO
     Route: 048
     Dates: start: 20080402, end: 20080415
  2. TEMODAR [Suspect]
     Indication: ACUTE MYELOID LEUKAEMIA
     Dosage: 100 MG/M2;QD;PO : 200 MG/M2;QD;PO
     Route: 048
     Dates: start: 20080416, end: 20080422
  3. ENALAPRIL MALEATE [Concomitant]
  4. PROTONIX [Concomitant]
  5. ACTOS [Concomitant]
  6. PRAVASTATIN [Concomitant]
  7. DILTIAZEM [Concomitant]
  8. PREDNISONE TAB [Concomitant]
  9. OXYGEN [Concomitant]

REACTIONS (20)
  - CARDIAC ARREST [None]
  - CARDIOVASCULAR DISORDER [None]
  - DISSEMINATED INTRAVASCULAR COAGULATION [None]
  - FUNGAL OESOPHAGITIS [None]
  - GENERAL PHYSICAL HEALTH DETERIORATION [None]
  - HYPERKALAEMIA [None]
  - HYPOTENSION [None]
  - HYPOVOLAEMIA [None]
  - INTERNATIONAL NORMALISED RATIO INCREASED [None]
  - MENTAL STATUS CHANGES [None]
  - MULTI-ORGAN FAILURE [None]
  - NEUTROPENIA [None]
  - ODYNOPHAGIA [None]
  - ORAL INTAKE REDUCED [None]
  - PHARYNGOLARYNGEAL PAIN [None]
  - PNEUMONIA [None]
  - SEPTIC SHOCK [None]
  - TACHYCARDIA [None]
  - TACHYPNOEA [None]
  - THROMBOCYTOPENIA [None]
